FAERS Safety Report 9184674 (Version 1)
Quarter: 2013Q1

REPORT INFORMATION
  Report Type: Spontaneous
  Country: DE (occurrence: DE)
  Receive Date: 20130324
  Receipt Date: 20130324
  Transmission Date: 20140127
  Serious: Yes (Hospitalization, Other)
  Sender: FDA-Public Use
  Company Number: DE-ROCHE-1198858

PATIENT
  Sex: Male
  Weight: 89 kg

DRUGS (6)
  1. HERCEPTIN [Suspect]
     Indication: GASTRIC CANCER
     Route: 042
     Dates: start: 201206, end: 201209
  2. HERCEPTIN [Suspect]
     Route: 042
     Dates: start: 20121119, end: 20130215
  3. CISPLATIN [Concomitant]
     Indication: GASTRIC CANCER
     Route: 065
     Dates: start: 201206, end: 201209
  4. 5-FU [Concomitant]
     Indication: GASTRIC CANCER
     Route: 065
     Dates: start: 201206, end: 201209
  5. PANTOPRAZOL [Concomitant]
     Route: 048
     Dates: start: 201111
  6. ZOLEDRONIC ACID [Concomitant]
     Indication: METASTASES TO BONE
     Route: 042
     Dates: start: 20121116

REACTIONS (3)
  - Peripheral embolism [Recovering/Resolving]
  - Extremity necrosis [Recovering/Resolving]
  - Nephropathy [Unknown]
